FAERS Safety Report 7377362-9 (Version None)
Quarter: 2011Q1

REPORT INFORMATION
  Report Type: 
  Country: None (occurrence: None)
  Receive Date: 20110328
  Receipt Date: 20110323
  Transmission Date: 20110831
  Serious: No
  Sender: FDA-Public Use
  Company Number: US-PFIZER INC-2011065109

PATIENT
  Sex: Male
  Weight: 106.12 kg

DRUGS (1)
  1. LIPITOR [Suspect]
     Indication: BLOOD CHOLESTEROL INCREASED
     Dosage: UNK, DAILY
     Route: 048
     Dates: start: 20010101

REACTIONS (7)
  - DIARRHOEA [None]
  - MYALGIA [None]
  - PRODUCTIVE COUGH [None]
  - NASAL CONGESTION [None]
  - FEELING ABNORMAL [None]
  - PYREXIA [None]
  - RESPIRATORY DISORDER [None]
